FAERS Safety Report 15264050 (Version 1)
Quarter: 2018Q3

REPORT INFORMATION
  Report Type: Report from Study
  Country: DE (occurrence: DE)
  Receive Date: 20180810
  Receipt Date: 20180810
  Transmission Date: 20181010
  Serious: Yes (Other)
  Sender: FDA-Public Use
  Company Number: DE-TEVA-2018-DE-937300

PATIENT
  Age: 77 Year
  Sex: Female
  Weight: 84 kg

DRUGS (12)
  1. BEVACIZUMAB. [Suspect]
     Active Substance: BEVACIZUMAB
     Indication: BREAST CANCER
     Route: 065
     Dates: start: 20120813
  2. PACLITAXEL. [Suspect]
     Active Substance: PACLITAXEL
     Route: 065
     Dates: start: 20120813
  3. PACLITAXEL. [Suspect]
     Active Substance: PACLITAXEL
     Route: 065
     Dates: start: 20120827
  4. PACLITAXEL. [Suspect]
     Active Substance: PACLITAXEL
     Route: 065
     Dates: start: 20121008
  5. PACLITAXEL. [Suspect]
     Active Substance: PACLITAXEL
     Route: 065
     Dates: start: 20120910
  6. PACLITAXEL. [Suspect]
     Active Substance: PACLITAXEL
     Route: 065
     Dates: start: 20121029
  7. PACLITAXEL. [Suspect]
     Active Substance: PACLITAXEL
     Route: 065
     Dates: start: 20121126
  8. BEVACIZUMAB. [Suspect]
     Active Substance: BEVACIZUMAB
     Route: 065
     Dates: start: 20120910
  9. PACLITAXEL. [Suspect]
     Active Substance: PACLITAXEL
     Route: 065
     Dates: start: 20121105
  10. PACLITAXEL. [Suspect]
     Active Substance: PACLITAXEL
     Route: 065
     Dates: start: 20121119
  11. PACLITAXEL. [Suspect]
     Active Substance: PACLITAXEL
     Indication: BREAST CANCER
     Route: 065
     Dates: start: 20120917
  12. PACLITAXEL. [Suspect]
     Active Substance: PACLITAXEL
     Route: 065
     Dates: start: 20121015

REACTIONS (4)
  - Haemoptysis [Recovered/Resolved]
  - Erythema [Recovered/Resolved]
  - Pyrexia [Recovered/Resolved]
  - Urethral haemorrhage [Recovered/Resolved]

NARRATIVE: CASE EVENT DATE: 20120817
